FAERS Safety Report 10004279 (Version 2)
Quarter: 2014Q1

REPORT INFORMATION
  Report Type: Spontaneous
  Country: US (occurrence: US)
  Receive Date: 20140312
  Receipt Date: 20140312
  Transmission Date: 20141002
  Serious: No
  Sender: FDA-Public Use
  Company Number: US-GILEAD-2012-0060380

PATIENT
  Age: 63 Year
  Sex: Male

DRUGS (1)
  1. LETAIRIS [Suspect]
     Indication: PRODUCT USED FOR UNKNOWN INDICATION
     Dosage: 5 MG, UNK
     Route: 048
     Dates: start: 20120731

REACTIONS (5)
  - Arthralgia [Unknown]
  - Migraine [Unknown]
  - Fatigue [Unknown]
  - Nasal congestion [Unknown]
  - Fluid retention [Unknown]
